FAERS Safety Report 24463188 (Version 1)
Quarter: 2024Q4

REPORT INFORMATION
  Report Type: Report from Study
  Country: US (occurrence: US)
  Receive Date: 20241018
  Receipt Date: 20241018
  Transmission Date: 20250115
  Serious: No
  Sender: ROCHE
  Company Number: US-ROCHE-2817692

PATIENT
  Age: 39 Year
  Sex: Female

DRUGS (26)
  1. XOLAIR [Suspect]
     Active Substance: OMALIZUMAB
     Indication: Urticaria
     Dosage: LAST DATE OF TREATMENT: 18/MAR/2022
     Route: 058
  2. XOLAIR [Suspect]
     Active Substance: OMALIZUMAB
     Indication: Idiopathic urticaria
     Route: 058
  3. XOLAIR [Suspect]
     Active Substance: OMALIZUMAB
     Indication: Urticaria chronic
  4. GABAPENTIN [Concomitant]
     Active Substance: GABAPENTIN
  5. METHIMAZOLE [Concomitant]
     Active Substance: METHIMAZOLE
  6. ALBUTEROL [Concomitant]
     Active Substance: ALBUTEROL
  7. LIDOCAINE [Concomitant]
     Active Substance: LIDOCAINE
  8. ADDERALL XR [Concomitant]
     Active Substance: AMPHETAMINE ASPARTATE\AMPHETAMINE SULFATE\DEXTROAMPHETAMINE SACCHARATE\DEXTROAMPHETAMINE SULFATE
  9. ADDERALL [Concomitant]
     Active Substance: AMPHETAMINE ASPARTATE\AMPHETAMINE SULFATE\DEXTROAMPHETAMINE SACCHARATE\DEXTROAMPHETAMINE SULFATE
  10. METHIMAZOLE [Concomitant]
     Active Substance: METHIMAZOLE
  11. LIDOCAINE [Concomitant]
     Active Substance: LIDOCAINE
  12. MEXILETINE [Concomitant]
     Active Substance: MEXILETINE
  13. EPINEPHRINE [Concomitant]
     Active Substance: EPINEPHRINE
  14. LINZESS [Concomitant]
     Active Substance: LINACLOTIDE
  15. PROMETHAZINE [Concomitant]
     Active Substance: PROMETHAZINE HYDROCHLORIDE
  16. MESTINON [Concomitant]
     Active Substance: PYRIDOSTIGMINE BROMIDE
  17. PLAQUENIL [Concomitant]
     Active Substance: HYDROXYCHLOROQUINE SULFATE
  18. GLYCOPYRROLATE [Concomitant]
     Active Substance: GLYCOPYRROLATE
  19. CLARITIN [Concomitant]
     Active Substance: LORATADINE
  20. DOCUSATE SODIUM\SENNOSIDES [Concomitant]
     Active Substance: DOCUSATE SODIUM\SENNOSIDES
  21. CLONIDINE [Concomitant]
     Active Substance: CLONIDINE
  22. MIRALAX [Concomitant]
     Active Substance: POLYETHYLENE GLYCOL 3350
  23. BACLOFEN [Concomitant]
     Active Substance: BACLOFEN
  24. MIDODRINE HYDROCHLORIDE [Concomitant]
     Active Substance: MIDODRINE HYDROCHLORIDE
  25. PROAIR HFA [Concomitant]
     Active Substance: ALBUTEROL SULFATE
  26. ATROVENT [Concomitant]
     Active Substance: IPRATROPIUM BROMIDE

REACTIONS (2)
  - Off label use [Unknown]
  - No adverse event [Unknown]
